FAERS Safety Report 9547906 (Version 1)
Quarter: 2013Q2

REPORT INFORMATION
  Report Type: Spontaneous
  Country: US (occurrence: None)
  Receive Date: 20130628
  Receipt Date: 20130628
  Transmission Date: 20140414
  Serious: No
  Sender: FDA-Public Use
  Company Number: 394749

PATIENT
  Age: 22 Year
  Sex: Female
  Weight: 86 kg

DRUGS (6)
  1. MEPIVACAINE HYDROCHLORIDE [Suspect]
     Indication: NERVE BLOCK
     Dosage: 10CC, ONCE, AXILLARY BLOCK, UNKNOWN, OTHER
     Dates: start: 20091001, end: 20091001
  2. ROPIVACAINE [Suspect]
     Indication: NERVE BLOCK
     Dosage: 10CC, ONCE, AXILLARY BLOCK, UNKNOWN, OTHER
     Dates: start: 20091001, end: 20091001
  3. DEXAMETHASONE [Suspect]
     Indication: NERVE BLOCK
     Dosage: ONCE, AXILLARY BLOCK, UNKOWN, OTHER
     Dates: start: 20091001, end: 20091001
  4. ALBUTEROL /00139501/) [Concomitant]
  5. (CLINDAMYCIN) [Concomitant]
  6. (EFFEXOR /01233801/) [Concomitant]

REACTIONS (1)
  - Grand mal convulsion [None]
